FAERS Safety Report 5398767-1 (Version None)
Quarter: 2007Q3

REPORT INFORMATION
  Report Type: 
  Country: None (occurrence: None)
  Receive Date: 20070726
  Receipt Date: 20060602
  Transmission Date: 20080115
  Serious: No
  Sender: FDA-Public Use
  Company Number: US-AMGEN-KDL181717

PATIENT
  Age: 66 Year
  Sex: Female

DRUGS (13)
  1. EPOGEN [Suspect]
     Indication: RENAL FAILURE CHRONIC
  2. VITAMIN CAP [Concomitant]
  3. VICODIN [Concomitant]
  4. AZATHIOPRINE [Concomitant]
  5. FOLIC ACID [Concomitant]
  6. MAXZIDE [Concomitant]
  7. ASPIRIN [Concomitant]
  8. PLAQUENIL [Concomitant]
  9. TRAZODONE HCL [Concomitant]
  10. LOVASTATIN [Concomitant]
  11. DIOVAN [Concomitant]
  12. CALCIUM CHLORIDE [Concomitant]
  13. PREVACID [Concomitant]

REACTIONS (3)
  - ERYTHEMA [None]
  - FLUSHING [None]
  - RASH [None]
